FAERS Safety Report 9791420 (Version 1)
Quarter: 2014Q1

REPORT INFORMATION
  Report Type: Report from Study
  Country: PH (occurrence: PH)
  Receive Date: 20140101
  Receipt Date: 20140101
  Transmission Date: 20141002
  Serious: No
  Sender: FDA-Public Use
  Company Number: PHHY2013PH152514

PATIENT
  Sex: Female

DRUGS (3)
  1. TASIGNA [Suspect]
     Indication: CHRONIC MYELOID LEUKAEMIA
     Dosage: 400 MG, DAY
     Route: 048
     Dates: start: 201106
  2. TASIGNA [Suspect]
     Dosage: 600 MG, DAY
     Route: 048
     Dates: start: 2013
  3. LIPITOR [Concomitant]
     Indication: LIPIDS INCREASED
     Dosage: 20 MG
     Route: 048

REACTIONS (1)
  - Chromosome analysis abnormal [Recovering/Resolving]
